FAERS Safety Report 7782701-0 (Version None)
Quarter: 2011Q3

REPORT INFORMATION
  Report Type: 
  Country: None (occurrence: None)
  Receive Date: 20110928
  Receipt Date: 20110922
  Transmission Date: 20111222
  Serious: Yes (Death, Hospitalization)
  Sender: FDA-Public Use
  Company Number: US-CELGENEUS-163-21880-11082394

PATIENT
  Sex: Male

DRUGS (5)
  1. ZOSYN [Concomitant]
     Indication: PNEUMONIA
     Route: 065
     Dates: start: 20110501
  2. FLAGYL [Concomitant]
     Indication: BACTERIAL INFECTION
     Route: 065
     Dates: start: 20110501
  3. VANCOMYCIN [Concomitant]
     Indication: INFECTION
     Route: 065
     Dates: start: 20110501
  4. REVLIMID [Suspect]
     Indication: MYELODYSPLASTIC SYNDROME
     Dosage: 10 MILLIGRAM
     Route: 048
     Dates: start: 20110415, end: 20110510
  5. ANTIBIOTICS [Concomitant]
     Route: 041

REACTIONS (10)
  - THROMBOCYTOPENIA [None]
  - ABDOMINAL ABSCESS [None]
  - PNEUMONIA [None]
  - MULTI-ORGAN FAILURE [None]
  - NEUTROPENIA [None]
  - CELLULITIS [None]
  - ANAEMIA [None]
  - SEPSIS [None]
  - 5Q MINUS SYNDROME [None]
  - ENTEROCUTANEOUS FISTULA [None]
